FAERS Safety Report 18979125 (Version 12)
Quarter: 2021Q4

REPORT INFORMATION
  Report Type: Spontaneous
  Country: GB (occurrence: GB)
  Receive Date: 20210308
  Receipt Date: 20211220
  Transmission Date: 20220303
  Serious: Yes (Hospitalization, Other)
  Sender: FDA-Public Use
  Company Number: GB-MHRA-ADR 23570934

PATIENT
  Age: 75 Year
  Sex: Female

DRUGS (75)
  1. ANASTROZOLE [Suspect]
     Active Substance: ANASTROZOLE
     Indication: Breast cancer
     Dosage: 10 MILLIGRAM, DAILY
     Route: 048
  2. ANASTROZOLE [Suspect]
     Active Substance: ANASTROZOLE
     Indication: Breast cancer metastatic
     Dosage: 178.041 MILLIGRAM, ONCE A DAY
     Route: 048
     Dates: start: 20160115
  3. DOCETAXEL [Suspect]
     Active Substance: DOCETAXEL
     Indication: Breast cancer
     Dosage: 170 MILLIGRAM, 3 WEEKS
     Route: 042
     Dates: start: 20150721, end: 20150721
  4. DOCETAXEL [Suspect]
     Active Substance: DOCETAXEL
     Indication: Breast cancer metastatic
     Dosage: 170 MILLIGRAM
     Route: 042
     Dates: start: 20150721
  5. DOCETAXEL [Suspect]
     Active Substance: DOCETAXEL
     Dosage: 170 MG, Q3W
     Route: 042
     Dates: start: 20150807, end: 20150807
  6. PERTUZUMAB [Suspect]
     Active Substance: PERTUZUMAB
     Indication: Breast cancer
     Dosage: 420 MILLIGRAM
     Route: 042
     Dates: start: 20150721, end: 20150721
  7. PERTUZUMAB [Suspect]
     Active Substance: PERTUZUMAB
     Indication: Breast cancer metastatic
     Dosage: 420 MILLIGRAM
     Route: 042
     Dates: start: 20150721, end: 20151126
  8. PERTUZUMAB [Suspect]
     Active Substance: PERTUZUMAB
     Dosage: 420 MILLIGRAM
     Route: 042
     Dates: start: 20151126
  9. TRASTUZUMAB [Suspect]
     Active Substance: TRASTUZUMAB
     Indication: Breast cancer
     Dosage: 600 MILLIGRAM, TWO TIMES A DAY
     Route: 058
  10. TRASTUZUMAB [Suspect]
     Active Substance: TRASTUZUMAB
     Indication: Breast cancer metastatic
     Dosage: 1200 MILLIGRAM, 3 WEEK
     Route: 058
     Dates: start: 20151126, end: 20151126
  11. TRASTUZUMAB [Suspect]
     Active Substance: TRASTUZUMAB
     Dosage: 1200  MILLIGRAM, 3 WEEK
     Route: 058
     Dates: start: 20210721
  12. TRASTUZUMAB [Suspect]
     Active Substance: TRASTUZUMAB
     Dosage: 600 MILLIGRAM, ONCE A DAY
     Route: 058
     Dates: start: 20150721, end: 20150721
  13. TRASTUZUMAB [Suspect]
     Active Substance: TRASTUZUMAB
     Dosage: 600 MILLIGRAM, 2 WEEK
     Route: 058
     Dates: start: 20150721, end: 20151126
  14. TRASTUZUMAB [Suspect]
     Active Substance: TRASTUZUMAB
     Dosage: 600 MILLIGRAM
     Route: 058
     Dates: start: 20150721, end: 20151126
  15. TRASTUZUMAB [Suspect]
     Active Substance: TRASTUZUMAB
     Dosage: 600 MILLIGRAM
     Route: 058
     Dates: start: 20150721, end: 20151126
  16. TRASTUZUMAB [Suspect]
     Active Substance: TRASTUZUMAB
     Dosage: 600 MILLIGRAM
     Route: 058
     Dates: start: 20151126, end: 20151126
  17. HYALURONIDASE (HUMAN RECOMBINANT)\TRASTUZUMAB [Suspect]
     Active Substance: HYALURONIDASE (HUMAN RECOMBINANT)\TRASTUZUMAB
     Indication: HER2 positive breast cancer
     Dosage: 600 MILLIGRAM
     Route: 058
     Dates: start: 20150721, end: 20151126
  18. HYALURONIDASE (HUMAN RECOMBINANT) [Suspect]
     Active Substance: HYALURONIDASE (HUMAN RECOMBINANT)
     Indication: HER2 positive breast cancer
     Dosage: 600 MILLIGRAM
     Route: 058
     Dates: start: 20150721, end: 20151126
  19. HYALURONIDASE (HUMAN RECOMBINANT) [Suspect]
     Active Substance: HYALURONIDASE (HUMAN RECOMBINANT)
     Indication: Breast cancer
  20. ALENDRONIC ACID [Concomitant]
     Active Substance: ALENDRONIC ACID
     Indication: Osteopenia
     Dosage: 70 MILLIGRAM, EVERY WEEK
     Route: 048
     Dates: start: 20180205
  21. ATORVASTATIN [Concomitant]
     Active Substance: ATORVASTATIN
     Indication: Prophylaxis
     Dosage: 20 MILLIGRAM, ONCE A DAY
     Route: 048
     Dates: start: 20161130
  22. BISOPROLOL [Concomitant]
     Active Substance: BISOPROLOL
     Indication: Prophylaxis
     Dosage: 2.5 MILLIGRAM
     Route: 048
     Dates: start: 20160121, end: 20160415
  23. BISOPROLOL [Concomitant]
     Active Substance: BISOPROLOL
     Indication: Ejection fraction decreased
     Dosage: 2.5 MILLIGRAM, ONCE A DAY
     Route: 048
     Dates: start: 201603
  24. BISOPROLOL [Concomitant]
     Active Substance: BISOPROLOL
     Dosage: 2.5 MILLIGRAM
     Route: 048
     Dates: start: 20160415
  25. BISOPROLOL [Concomitant]
     Active Substance: BISOPROLOL
     Dosage: 5 MILLIGRAM, ONCE A DAY
     Route: 048
  26. CANDESARTAN [Concomitant]
     Active Substance: CANDESARTAN
     Indication: Product used for unknown indication
     Dosage: 32 MILLIGRAM, ONCE A DAY
     Route: 048
     Dates: start: 2013
  27. CALCIUM CARBONATE [Concomitant]
     Active Substance: CALCIUM CARBONATE
     Indication: Osteopenia
     Dosage: 1000 MILLIGRAM, ONCE A DAY
     Route: 048
     Dates: start: 20180205
  28. CALCIUM CARBONATE [Concomitant]
     Active Substance: CALCIUM CARBONATE
     Dosage: 500 MILLIGRAM, ONCE A DAY
     Route: 048
     Dates: start: 20180205
  29. CO-DYDRAMOL [Concomitant]
     Active Substance: ACETAMINOPHEN\DIHYDROCODEINE
     Indication: Back pain
     Dosage: 500 MILLIGRAM
     Route: 048
     Dates: start: 201701
  30. CHLORPHENIRAMINE MALEATE [Concomitant]
     Active Substance: CHLORPHENIRAMINE MALEATE
     Indication: Premedication
     Dosage: 10 MILLIGRAM
     Route: 042
     Dates: start: 20150721
  31. CHLORPHENIRAMINE MALEATE [Concomitant]
     Active Substance: CHLORPHENIRAMINE MALEATE
     Indication: Chemotherapy side effect prophylaxis
  32. CLOPIDOGREL [Concomitant]
     Active Substance: CLOPIDOGREL BISULFATE
     Indication: Prophylaxis
     Dosage: 75 MILLIGRAM, ONCE A DAY
     Route: 048
     Dates: start: 20161130
  33. COCODAMOL [Concomitant]
     Active Substance: ACETAMINOPHEN\CODEINE PHOSPHATE
     Indication: Product used for unknown indication
     Dosage: 500 MILLIGRAM
     Route: 048
  34. COCODAMOL [Concomitant]
     Active Substance: ACETAMINOPHEN\CODEINE PHOSPHATE
     Dosage: 500 MILLIGRAM
     Route: 048
     Dates: start: 20150720
  35. DALTEPARIN [Concomitant]
     Active Substance: DALTEPARIN
     Indication: Pleural effusion
     Dosage: 1 DOSAGE FORM, ONCE A DAY
     Route: 058
  36. DALTEPARIN [Concomitant]
     Active Substance: DALTEPARIN
     Dosage: 10000 INTERNATIONAL UNIT
     Route: 058
     Dates: start: 20151206
  37. DEXAMETHASONE [Concomitant]
     Active Substance: DEXAMETHASONE
     Indication: Prophylaxis
     Dosage: 1 GTT DROPS
     Route: 048
     Dates: start: 20160601
  38. DEXAMETHASONE [Concomitant]
     Active Substance: DEXAMETHASONE
     Dosage: 8 MILLIGRAM, TWO TIMES A DAY
     Route: 048
     Dates: start: 20150721
  39. DIAMOX SEQUELS [Concomitant]
     Active Substance: ACETAZOLAMIDE
     Indication: Retinal detachment
     Dosage: 1 GTT DROPS, ONCE A DAY;
     Route: 047
     Dates: start: 20160601
  40. DIGOXIN [Concomitant]
     Active Substance: DIGOXIN
     Indication: Product used for unknown indication
     Dosage: 62.5 MICROGRAM
     Route: 048
     Dates: start: 20160121
  41. DIGOXIN [Concomitant]
     Active Substance: DIGOXIN
     Dosage: 500 MILLIGRAM, AS NECESSARY
     Route: 048
     Dates: start: 201701
  42. FELODIPINE [Concomitant]
     Active Substance: FELODIPINE
     Indication: Product used for unknown indication
     Dosage: 2.5 MILLIGRAM, ONCE A DAY (CUMULATIVE DOSE 1167.5 WITHOUT UNIT, 2.5 DOSE WITHOUT UNIT, 2.5 MILLIGRAM
     Route: 048
     Dates: start: 20161030
  43. FENTANYL [Concomitant]
     Active Substance: FENTANYL
     Indication: Product used for unknown indication
     Dosage: 200 MICROGRAM
     Route: 042
     Dates: start: 20160531
  44. FUROSEMIDE [Concomitant]
     Active Substance: FUROSEMIDE
     Indication: Dyspnoea
     Dosage: 100 MILLIGRAM, TWO TIMES A DAY (CUMULATIVE DOSE 13804.17 WITHOUT UNIT, 50 DOSE WITHOUT UNIT, 50 MILL
     Route: 042
     Dates: start: 20151206, end: 20151207
  45. FUROSEMIDE [Concomitant]
     Active Substance: FUROSEMIDE
     Dosage: 40 MILLIGRAM, ONCE A DAY (CUMULATIVE DOSE WITHOUT 13804.17 UNIT, 40 MILLIGRAM;)
     Route: 048
     Dates: start: 20151211
  46. IOPIDINE [Concomitant]
     Active Substance: APRACLONIDINE HYDROCHLORIDE
     Indication: Product used for unknown indication
     Dosage: 1 GTT DROPS
     Route: 047
     Dates: start: 20160601
  47. INDAPAMIDE [Concomitant]
     Active Substance: INDAPAMIDE
     Indication: Prophylaxis
     Dosage: 2.5 DOSE WITHOUT UNIT, 2.5 MILLIGRAM, ONCE A DAY
     Route: 048
     Dates: start: 2016
  48. IMODIUM [Concomitant]
     Active Substance: LOPERAMIDE HYDROCHLORIDE
     Indication: Diarrhoea
     Dosage: 4 MILLIGRAM, AS NECESSARY; AS NECESSARY
     Route: 065
     Dates: start: 20150730
  49. IBUPROFEN [Concomitant]
     Active Substance: IBUPROFEN
     Indication: Back pain
     Dosage: 1200 MILLIGRAM, ONCE A DAY
     Route: 048
     Dates: start: 20150918
  50. LIDOCAINE [Concomitant]
     Active Substance: LIDOCAINE
     Indication: Pain
     Dosage: 1 DOSAGE FORM, (AS NECESSARY
     Route: 062
     Dates: start: 20190405
  51. LISINOPRIL [Concomitant]
     Active Substance: LISINOPRIL
     Indication: Dyspnoea
     Dosage: 5 MILLIGRAM
     Route: 048
     Dates: start: 20151218, end: 20160121
  52. LISINOPRIL [Concomitant]
     Active Substance: LISINOPRIL
     Dosage: 2.5 MILLIGRAM
     Route: 048
     Dates: start: 20160121
  53. LISINOPRIL [Concomitant]
     Active Substance: LISINOPRIL
     Dosage: 2.5 MILLIGRAM;
     Route: 048
     Dates: start: 20160121, end: 20160415
  54. METOCLOPRAMIDE [Concomitant]
     Active Substance: METOCLOPRAMIDE
     Indication: Nausea
     Dosage: 10 MILLIGRAM AS NEEDED
     Route: 048
     Dates: start: 20150721, end: 20150727
  55. METOCLOPRAMIDE [Concomitant]
     Active Substance: METOCLOPRAMIDE
     Indication: Prophylaxis
     Dosage: 10 MILLIGRAM, AS NECESSARY;
     Route: 048
     Dates: start: 20150730
  56. METOCLOPRAMIDE [Concomitant]
     Active Substance: METOCLOPRAMIDE
     Dosage: UNK
  57. METOCLOPRAMIDE [Concomitant]
     Active Substance: METOCLOPRAMIDE
     Dosage: 10 MILLIGRAM, AS NECESSARY;
     Route: 048
     Dates: start: 20150721, end: 20150727
  58. CYCLOPENTOLATE HYDROCHLORIDE [Concomitant]
     Active Substance: CYCLOPENTOLATE HYDROCHLORIDE
     Indication: Retinal detachment
     Dosage: 1 GTT DROPS
     Route: 047
     Dates: start: 20160601
  59. MORPHINE SULFATE [Concomitant]
     Active Substance: MORPHINE SULFATE
     Indication: Pain
     Dosage: 5 MILLIGRAM, AS NECESARY, PRN;
     Route: 048
     Dates: start: 20190405
  60. ONDANSETRON [Concomitant]
     Active Substance: ONDANSETRON
     Indication: Prophylaxis
     Dosage: 8 MILLIGRAM, TWO TIMES A DAY, TWICE DAILY FOR 3 DAYS POST CHEMOTHERAPY
     Route: 048
     Dates: start: 20150721
  61. ACETAMINOPHEN [Concomitant]
     Active Substance: ACETAMINOPHEN
     Indication: Headache
     Dosage: ALSO TAKEN 1 G FROM 31-MAY-2016
     Route: 048
     Dates: start: 20150721
  62. ACETAMINOPHEN [Concomitant]
     Active Substance: ACETAMINOPHEN
     Indication: Premedication
     Dosage: CUMULATIVE DOSE .048 WITHOUT UNIT,DOSE 1 WITHOUT UNIT, 1 MILLIGRAM, 3 WEEKS
     Route: 048
     Dates: start: 20160531
  63. ACETAMINOPHEN [Concomitant]
     Active Substance: ACETAMINOPHEN
     Indication: Retinal detachment
     Dosage: 500 MG, PRN
     Route: 048
  64. ACETAMINOPHEN [Concomitant]
     Active Substance: ACETAMINOPHEN
     Indication: Chemotherapy side effect prophylaxis
     Dosage: CUMULATIVE DOSE 1 WITHOUT UNIT, 1 DOSE WITHOUT UNIT, 1 MILLIGRAM, 3 WEEKS
     Route: 048
     Dates: start: 20150721, end: 20151126
  65. PREDNISOLONE [Concomitant]
     Active Substance: PREDNISOLONE
     Indication: Retinal detachment
     Dosage: 40 MILLIGRAM, ONCE A DAY (CUMULATIVE DOSE 12640 WITHOUT UNIT AND 40 DOSE WITHOUT UNIT, 40 MILLIGRAM,
     Route: 048
     Dates: start: 20160601
  66. RAMIPRIL [Concomitant]
     Active Substance: RAMIPRIL
     Indication: Ejection fraction decreased
     Dosage: 10 MILLIGRAM, TWO TIMES A DAY
     Route: 048
     Dates: start: 2016
  67. RAMIPRIL [Concomitant]
     Active Substance: RAMIPRIL
     Indication: Prophylaxis
     Dosage: 1 DOSAGE FORM, ONCE A DAY
     Route: 048
     Dates: start: 20160415, end: 201605
  68. RAMIPRIL [Concomitant]
     Active Substance: RAMIPRIL
     Dosage: 3.75  MILLIGRAM, ONCE A DAY
     Route: 048
     Dates: start: 201605
  69. RAMIPRIL [Concomitant]
     Active Substance: RAMIPRIL
     Dosage: 7.5 MILLIGRAM, ONCE A DAY
     Route: 048
     Dates: start: 201605, end: 201606
  70. RAMIPRIL [Concomitant]
     Active Substance: RAMIPRIL
     Dosage: 3.75 MILLIGRAM, ONCE A DAY
     Route: 048
     Dates: start: 201605
  71. TOBRADEX [Concomitant]
     Active Substance: DEXAMETHASONE\TOBRAMYCIN
     Indication: Retinal detachment
     Dosage: 1 GTT DROPS
     Route: 047
     Dates: start: 20160601
  72. TRIMETHOPRIM [Concomitant]
     Active Substance: TRIMETHOPRIM
     Indication: Urinary tract infection
     Dosage: 200 MILLIGRAM, ONCE A DAY (CUMULATIVE DOSE 237200 WITHOUT UNIT, 200 DOSE WITHOUT UNIT, 200 MILLIGRAM
     Route: 065
     Dates: start: 20181019
  73. TOBRAMYCIN [Concomitant]
     Active Substance: TOBRAMYCIN
     Indication: Premedication
     Dosage: 10 MILLIGRAM, WEEKS
     Route: 048
     Dates: start: 20150721, end: 20151126
  74. TOBRAMYCIN [Concomitant]
     Active Substance: TOBRAMYCIN
     Dosage: 200 MILLIGRAM, ONCE A DAY
     Route: 048
     Dates: start: 20181019
  75. SENNA [Concomitant]
     Active Substance: SENNA LEAF\SENNOSIDES\SENNOSIDES A AND B
     Indication: Constipation
     Dosage: 15 MILLIGRAM, ONCE A DAY
     Route: 048
     Dates: start: 20150721

REACTIONS (18)
  - Osteopenia [Not Recovered/Not Resolved]
  - Pleural effusion [Recovered/Resolved]
  - Retinal detachment [Recovered/Resolved with Sequelae]
  - Fatigue [Not Recovered/Not Resolved]
  - Weight decreased [Recovered/Resolved]
  - Ejection fraction decreased [Recovered/Resolved]
  - Diarrhoea [Recovered/Resolved]
  - Dizziness [Recovered/Resolved]
  - Constipation [Recovered/Resolved]
  - Nausea [Recovered/Resolved]
  - Back pain [Recovered/Resolved]
  - Dyspnoea [Recovered/Resolved]
  - Presyncope [Recovered/Resolved]
  - Alopecia [Recovered/Resolved]
  - Rectal haemorrhage [Recovered/Resolved]
  - Haemorrhoids [Recovered/Resolved with Sequelae]
  - Condition aggravated [Recovered/Resolved]
  - Headache [Not Recovered/Not Resolved]

NARRATIVE: CASE EVENT DATE: 20150721
